FAERS Safety Report 8302026-4 (Version None)
Quarter: 2012Q2

REPORT INFORMATION
  Report Type: 
  Country: None (occurrence: None)
  Receive Date: 20120420
  Receipt Date: 20120410
  Transmission Date: 20120825
  Serious: Yes (Hospitalization, Other)
  Sender: FDA-Public Use
  Company Number: US-MERCK-1201USA00343

PATIENT
  Age: 62 Year
  Sex: Female

DRUGS (6)
  1. FOSAMAX [Suspect]
     Route: 048
     Dates: start: 20021017
  2. FOSAMAX [Suspect]
     Route: 048
     Dates: start: 20020101
  3. VITAMINS (UNSPECIFIED) [Concomitant]
     Route: 065
     Dates: start: 19900101
  4. FOSAMAX [Suspect]
     Indication: OSTEOPENIA
     Route: 048
     Dates: end: 20100201
  5. FOSAMAX [Suspect]
     Route: 048
     Dates: start: 20001120
  6. ALENDRONATE SODIUM [Suspect]
     Indication: OSTEOPENIA
     Route: 048
     Dates: start: 20080311

REACTIONS (11)
  - HAEMOGLOBIN DECREASED [None]
  - FALL [None]
  - HYPERCHOLESTEROLAEMIA [None]
  - GASTROOESOPHAGEAL REFLUX DISEASE [None]
  - FEMUR FRACTURE [None]
  - PEPTIC ULCER [None]
  - HYPERTENSION [None]
  - INTERVERTEBRAL DISC DEGENERATION [None]
  - LEUKOCYTOSIS [None]
  - CERVICAL SPINAL STENOSIS [None]
  - ARTHRITIS [None]
